FAERS Safety Report 5891025-8 (Version None)
Quarter: 2008Q3

REPORT INFORMATION
  Report Type: 
  Country: None (occurrence: None)
  Receive Date: 20080922
  Receipt Date: 20080910
  Transmission Date: 20090109
  Serious: Yes (Other)
  Sender: FDA-Public Use
  Company Number: B0537823A

PATIENT

DRUGS (1)
  1. ABACAVIR [Suspect]
     Indication: HIV INFECTION
     Route: 065

REACTIONS (1)
  - MYOCARDIAL INFARCTION [None]
